FAERS Safety Report 18980086 (Version 1)
Quarter: 2021Q1

REPORT INFORMATION
  Report Type: Spontaneous
  Country: US (occurrence: US)
  Receive Date: 20210308
  Receipt Date: 20210308
  Transmission Date: 20210420
  Serious: No
  Sender: FDA-Public Use
  Company Number: US-GLAXOSMITHKLINE-US2021055877

PATIENT
  Sex: Female

DRUGS (2)
  1. TRELEGY ELLIPTA [Suspect]
     Active Substance: FLUTICASONE FUROATE\UMECLIDINIUM BROMIDE\VILANTEROL TRIFENATATE
     Indication: PRODUCT USED FOR UNKNOWN INDICATION
     Dosage: UNK
     Route: 055
  2. NUCALA [Suspect]
     Active Substance: MEPOLIZUMAB
     Indication: ASTHMA
     Dosage: UNK
     Route: 042
     Dates: start: 202006

REACTIONS (7)
  - Rhinorrhoea [Recovered/Resolved]
  - Sinusitis [Recovered/Resolved]
  - Incorrect route of product administration [Unknown]
  - Injection site pain [Unknown]
  - Drug ineffective [Unknown]
  - Myalgia [Unknown]
  - Dyspnoea [Not Recovered/Not Resolved]
